FAERS Safety Report 24976417 (Version 1)
Quarter: 2025Q1

REPORT INFORMATION
  Report Type: Report from Study
  Country: US (occurrence: US)
  Receive Date: 20250217
  Receipt Date: 20250217
  Transmission Date: 20250409
  Serious: Yes (Other)
  Sender: ALEXION PHARMACEUTICALS
  Company Number: US-AstraZeneca-2015SF00447

PATIENT
  Age: 47 Year
  Weight: 80.286 kg

DRUGS (18)
  1. SYMBICORT [Suspect]
     Active Substance: BUDESONIDE\FORMOTEROL FUMARATE DIHYDRATE
     Indication: Bronchitis chronic
     Dosage: 160/4.5 MG TWICE DAILY
  2. SYMBICORT [Suspect]
     Active Substance: BUDESONIDE\FORMOTEROL FUMARATE DIHYDRATE
     Indication: Chronic obstructive pulmonary disease
  3. NEXIUM [Suspect]
     Active Substance: ESOMEPRAZOLE MAGNESIUM
     Indication: Gastrooesophageal reflux disease
     Dosage: 40 MILLIGRAM, QD
  4. CYMBALTA [Concomitant]
     Active Substance: DULOXETINE HYDROCHLORIDE
     Indication: Depression
  5. RANEXA [Concomitant]
     Active Substance: RANOLAZINE
     Indication: Cardiac disorder
     Dosage: 500 MILLIGRAM, BID
  6. TRAZODONE [Concomitant]
     Active Substance: TRAZODONE HYDROCHLORIDE
     Indication: Sleep disorder therapy
  7. KLONOPIN [Concomitant]
     Active Substance: CLONAZEPAM
     Indication: Anxiety
  8. KLONOPIN [Concomitant]
     Active Substance: CLONAZEPAM
     Indication: Nerve injury
  9. TYLENOL [Concomitant]
     Active Substance: ACETAMINOPHEN
     Indication: Pain
     Dosage: 1000 MILLIGRAM, QD
  10. TYLENOL [Concomitant]
     Active Substance: ACETAMINOPHEN
     Indication: Migraine
  11. TOPAMAX [Concomitant]
     Active Substance: TOPIRAMATE
     Indication: Migraine
     Dosage: 25 MILLIGRAM, QD
  12. ATORVASTATIN [Concomitant]
     Active Substance: ATORVASTATIN
     Indication: Blood cholesterol abnormal
     Dosage: 80 MILLIGRAM, QD
  13. ASPIRIN [Concomitant]
     Active Substance: ASPIRIN
     Indication: Anticoagulant therapy
     Dosage: 81 MILLIGRAM, QD
  14. ISOSORBIDE [Concomitant]
     Active Substance: ISOSORBIDE
     Indication: Cardiac disorder
     Dosage: 30 MILLIGRAM, QD
  15. ZIAC [Concomitant]
     Active Substance: BISOPROLOL FUMARATE\HYDROCHLOROTHIAZIDE
     Indication: Hypertension
  16. VITAMINS [Concomitant]
     Active Substance: VITAMINS
     Indication: Vitamin supplementation
  17. POTASSIUM [Concomitant]
     Active Substance: POTASSIUM
     Indication: Mineral supplementation
  18. PROAIR HFA [Concomitant]
     Active Substance: ALBUTEROL SULFATE
     Indication: Bronchitis chronic

REACTIONS (17)
  - Coronary artery occlusion [Unknown]
  - Coronary artery disease [Unknown]
  - Colon cancer [Unknown]
  - Intervertebral disc protrusion [Unknown]
  - Systemic lupus erythematosus [Unknown]
  - Anxiety [Unknown]
  - Blood potassium decreased [Unknown]
  - Deafness permanent [Unknown]
  - Sleep apnoea syndrome [Unknown]
  - Contusion [Unknown]
  - Fibromyalgia [Unknown]
  - Migraine [Unknown]
  - Neuropathy peripheral [Unknown]
  - Mental disorder [Unknown]
  - Osteoarthritis [Unknown]
  - Osteoporosis [Unknown]
  - Product dose omission issue [Unknown]
